FAERS Safety Report 20113485 (Version 2)
Quarter: 2021Q4

REPORT INFORMATION
  Report Type: Spontaneous
  Country: CN (occurrence: CN)
  Receive Date: 20211125
  Receipt Date: 20211129
  Transmission Date: 20220304
  Serious: Yes (Hospitalization)
  Sender: FDA-Public Use
  Company Number: CN-PFIZER INC-202101577323

PATIENT
  Age: 30 Year
  Sex: Male
  Weight: 70 kg

DRUGS (4)
  1. ZYVOX [Suspect]
     Active Substance: LINEZOLID
     Indication: Mycobacterial infection
     Dosage: 600 MG, 2X/DAY
     Route: 048
     Dates: start: 20210625, end: 20211101
  2. AZITHROMYCIN [Concomitant]
     Active Substance: AZITHROMYCIN
     Indication: Mycobacterial infection
     Dosage: UNK
     Dates: start: 20120625
  3. MINOCYCLINE [Concomitant]
     Active Substance: MINOCYCLINE HYDROCHLORIDE
     Indication: Mycobacterial infection
     Dosage: UNK
     Dates: start: 20120625
  4. ETHAMBUTOL [Concomitant]
     Active Substance: ETHAMBUTOL HYDROCHLORIDE
     Indication: Mycobacterial infection
     Dosage: UNK
     Dates: start: 20120625

REACTIONS (4)
  - Hypoaesthesia [Not Recovered/Not Resolved]
  - Off label use [Unknown]
  - Off label use [Unknown]
  - Product use issue [Unknown]

NARRATIVE: CASE EVENT DATE: 20210625
